FAERS Safety Report 5755556-3 (Version None)
Quarter: 2008Q2

REPORT INFORMATION
  Report Type: 
  Country: None (occurrence: None)
  Receive Date: 20080528
  Receipt Date: 20080509
  Transmission Date: 20081010
  Serious: Yes (Hospitalization)
  Sender: FDA-Public Use
  Company Number: S08-GER-00245-01

PATIENT
  Age: 32 Year
  Sex: Female
  Weight: 140.2 kg

DRUGS (3)
  1. ESCITALOPRAM [Suspect]
     Indication: BORDERLINE PERSONALITY DISORDER
     Dosage: 40 MG OD PO
     Route: 048
     Dates: start: 20060401
  2. ESCITALOPRAM [Suspect]
     Indication: DEPRESSION
     Dosage: 40 MG OD PO
     Route: 048
     Dates: start: 20060401
  3. TOPAMAX [Concomitant]

REACTIONS (13)
  - ACTIVATED PARTIAL THROMBOPLASTIN TIME PROLONGED [None]
  - BACTERIA URINE IDENTIFIED [None]
  - ERYTHEMA [None]
  - HEPATIC STEATOSIS [None]
  - HEPATOMEGALY [None]
  - OEDEMA PERIPHERAL [None]
  - OVERDOSE [None]
  - PANCREAS LIPOMATOSIS [None]
  - PLATELET COUNT DECREASED [None]
  - POLYARTHRITIS [None]
  - RHEUMATOID ARTHRITIS [None]
  - UPPER RESPIRATORY TRACT INFECTION [None]
  - URTICARIA [None]
